FAERS Safety Report 9940672 (Version 1)
Quarter: 2014Q1

REPORT INFORMATION
  Report Type: Spontaneous
  Country: US (occurrence: US)
  Receive Date: 20140303
  Receipt Date: 20140303
  Transmission Date: 20141002
  Serious: No
  Sender: FDA-Public Use
  Company Number: US-BAYER-2014-032339

PATIENT
  Age: 71 Year
  Sex: Female
  Weight: 50 kg

DRUGS (3)
  1. ALEVE CAPLET [Suspect]
     Dosage: 1 DF, UNK
     Route: 048
     Dates: start: 20140224, end: 20140227
  2. OMEPRAZOLE [Concomitant]
  3. MIRALAX [Concomitant]

REACTIONS (2)
  - Drug ineffective [None]
  - Pain [Not Recovered/Not Resolved]
